FAERS Safety Report 24594356 (Version 2)
Quarter: 2025Q3

REPORT INFORMATION
  Report Type: Report from Study
  Country: US (occurrence: US)
  Receive Date: 20241108
  Receipt Date: 20250803
  Transmission Date: 20251021
  Serious: Yes (Congenital Anomaly)
  Sender: ALEXION PHARMACEUTICALS
  Company Number: US-AstraZeneca-2024A194885

PATIENT
  Age: 85 Year
  Sex: Male
  Weight: 182 kg

DRUGS (1)
  1. FARXIGA [Suspect]
     Active Substance: DAPAGLIFLOZIN PROPANEDIOL
     Dosage: 5 MILLIGRAM, QD

REACTIONS (3)
  - Inflammation [Unknown]
  - Anorectal infection [Recovered/Resolved]
  - Drug ineffective [Unknown]
